FAERS Safety Report 15486860 (Version 1)
Quarter: 2018Q4

REPORT INFORMATION
  Report Type: Spontaneous
  Country: US (occurrence: US)
  Receive Date: 20181011
  Receipt Date: 20181011
  Transmission Date: 20190205
  Serious: No
  Sender: FDA-Public Use
  Company Number: US-ACLARIS THERAPEUTICS-2018US008921

PATIENT
  Age: 78 Year
  Sex: Female
  Weight: 56.69 kg

DRUGS (1)
  1. ESKATA [Suspect]
     Active Substance: HYDROGEN PEROXIDE
     Indication: MACULE
     Dosage: 1 DF, 4 TIMES
     Route: 061
     Dates: start: 20180829, end: 20180829

REACTIONS (6)
  - Eye swelling [Recovered/Resolved]
  - Skin discolouration [Not Recovered/Not Resolved]
  - Hair colour changes [Unknown]
  - Swelling face [Recovered/Resolved]
  - Application site macule [Not Recovered/Not Resolved]
  - Application site pain [Unknown]

NARRATIVE: CASE EVENT DATE: 20180829
